FAERS Safety Report 6000120-4 (Version None)
Quarter: 2008Q4

REPORT INFORMATION
  Report Type: 
  Country: None (occurrence: None)
  Receive Date: 20081211
  Receipt Date: 20081125
  Transmission Date: 20090506
  Serious: Yes (Life-Threatening)
  Sender: FDA-Public Use
  Company Number: DSA_32764_2008

PATIENT
  Sex: Male

DRUGS (6)
  1. TAVOR /00273201/ (TAVOR) (NOT SPECIFIED) [Suspect]
     Indication: INSOMNIA
     Dosage: 1 MG QD, ORAL
     Route: 048
     Dates: start: 20080925, end: 20081007
  2. BROMAZEPAM (BROMAZEPAM) [Suspect]
     Indication: PSYCHOMOTOR HYPERACTIVITY
     Dosage: 2.5 MG QD; ORAL
     Route: 048
     Dates: start: 20081008, end: 20081008
  3. NITRO-DUR [Concomitant]
  4. LASIX [Concomitant]
  5. FERLIXIT [Concomitant]
  6. PANTORC [Concomitant]

REACTIONS (1)
  - RESPIRATORY FAILURE [None]
